FAERS Safety Report 11388086 (Version 2)
Quarter: 2015Q3

REPORT INFORMATION
  Report Type: Report from Study
  Country: JP (occurrence: JP)
  Receive Date: 20150817
  Receipt Date: 20150911
  Transmission Date: 20151125
  Serious: Yes (Other)
  Sender: FDA-Public Use
  Company Number: JP-GLAXOSMITHKLINE-JP2015JPN115625

PATIENT
  Age: 46 Year
  Sex: Male
  Weight: 70 kg

DRUGS (1)
  1. ATOVAQUONE + PROGUANIL HYDROCHLORIDE [Suspect]
     Active Substance: ATOVAQUONE\PROGUANIL HYDROCHLORIDE
     Indication: PLASMODIUM FALCIPARUM INFECTION
     Dosage: 4 DF, QD
     Route: 048
     Dates: start: 20140829, end: 20140901

REACTIONS (2)
  - Liver disorder [Recovered/Resolved]
  - Platelet count decreased [Recovered/Resolved]

NARRATIVE: CASE EVENT DATE: 20140829
